FAERS Safety Report 8970046 (Version 1)
Quarter: 2012Q4

REPORT INFORMATION
  Report Type: 
  Country: US (occurrence: US)
  Receive Date: 20121218
  Receipt Date: 20121218
  Transmission Date: 20130627
  Serious: Yes (Hospitalization)
  Sender: FDA-Public Use
  Company Number: US-BRISTOL-MYERS SQUIBB COMPANY-16209728

PATIENT
  Age: 56 Year
  Sex: Female
  Weight: 136.05 kg

DRUGS (2)
  1. ABILIFY TABS [Suspect]
     Indication: BIPOLAR DISORDER
     Dosage: 1 DF : 1-2 tabs,two months ago
     Dates: start: 2011
  2. ABILIFY TABS [Suspect]
     Indication: SCHIZOPHRENIA, PARANOID TYPE
     Dosage: 1 DF : 1-2 tabs,two months ago
     Dates: start: 2011

REACTIONS (2)
  - Psychotic disorder [Not Recovered/Not Resolved]
  - Drug ineffective [Unknown]
